FAERS Safety Report 8836979 (Version 2)
Quarter: 2013Q3

REPORT INFORMATION
  Report Type: Report from Study
  Country: US (occurrence: US)
  Receive Date: 20121012
  Receipt Date: 20130926
  Transmission Date: 20140515
  Serious: Yes (Life-Threatening, Other)
  Sender: FDA-Public Use
  Company Number: PHEH2012US019906

PATIENT
  Age: 67 Year
  Sex: Female
  Weight: 57.6 kg

DRUGS (2)
  1. GLEEVEC [Suspect]
     Indication: CHRONIC MYELOID LEUKAEMIA
     Dosage: 400 MG, DAILY
     Route: 048
     Dates: start: 20120823
  2. GLEEVEC [Suspect]
     Dosage: 400 MG, DAILY
     Route: 048
     Dates: start: 20120901, end: 20120905

REACTIONS (7)
  - Pharyngeal oedema [Recovered/Resolved]
  - Bronchospasm [Recovered/Resolved]
  - Dyspnoea [Unknown]
  - Stridor [Recovered/Resolved]
  - Lip swelling [Unknown]
  - Swelling face [Unknown]
  - Eye swelling [Unknown]
